FAERS Safety Report 25012997 (Version 1)
Quarter: 2025Q1

REPORT INFORMATION
  Report Type: Spontaneous
  Country: IE (occurrence: IE)
  Receive Date: 20250226
  Receipt Date: 20250226
  Transmission Date: 20250409
  Serious: Yes (Hospitalization)
  Sender: MYLAN
  Company Number: IE-MYLANLABS-2025M1016085

PATIENT
  Age: 9 Decade
  Sex: Male

DRUGS (8)
  1. ATORVASTATIN [Suspect]
     Active Substance: ATORVASTATIN
     Indication: Cardiovascular event prophylaxis
     Dosage: 20 MILLIGRAM, QD
  2. ATORVASTATIN [Suspect]
     Active Substance: ATORVASTATIN
     Dosage: 20 MILLIGRAM, QD
     Route: 065
  3. ATORVASTATIN [Suspect]
     Active Substance: ATORVASTATIN
     Dosage: 20 MILLIGRAM, QD
     Route: 065
  4. ATORVASTATIN [Suspect]
     Active Substance: ATORVASTATIN
     Dosage: 20 MILLIGRAM, QD
  5. APIXABAN [Concomitant]
     Active Substance: APIXABAN
     Indication: Product used for unknown indication
     Dosage: 5 MILLIGRAM, BID
  6. APIXABAN [Concomitant]
     Active Substance: APIXABAN
     Dosage: 5 MILLIGRAM, BID
     Route: 065
  7. APIXABAN [Concomitant]
     Active Substance: APIXABAN
     Dosage: 5 MILLIGRAM, BID
     Route: 065
  8. APIXABAN [Concomitant]
     Active Substance: APIXABAN
     Dosage: 5 MILLIGRAM, BID

REACTIONS (3)
  - Necrotising myositis [Recovering/Resolving]
  - Cardiac failure [Recovering/Resolving]
  - Liver injury [Recovering/Resolving]
